FAERS Safety Report 13492411 (Version 1)
Quarter: 2017Q2

REPORT INFORMATION
  Report Type: Spontaneous
  Country: US (occurrence: US)
  Receive Date: 20170427
  Receipt Date: 20170427
  Transmission Date: 20170830
  Serious: No
  Sender: FDA-Public Use
  Company Number: US-PFIZER INC-2017183151

PATIENT
  Age: 54 Year
  Sex: Female
  Weight: 82 kg

DRUGS (1)
  1. ADVIL ALLERGY SINUS [Suspect]
     Active Substance: CHLORPHENIRAMINE MALEATE\IBUPROFEN\PSEUDOEPHEDRINE HYDROCHLORIDE
     Indication: HYPERSENSITIVITY
     Dosage: 2 DF,(TOOK ONE AND THEN 6 HOURS TOOK ANOTHER ONE)
     Route: 048
     Dates: start: 20170423, end: 20170423

REACTIONS (1)
  - Drug ineffective [Unknown]

NARRATIVE: CASE EVENT DATE: 20170423
